FAERS Safety Report 24900575 (Version 2)
Quarter: 2025Q3

REPORT INFORMATION
  Report Type: Report from Study
  Country: US (occurrence: US)
  Receive Date: 20250129
  Receipt Date: 20250810
  Transmission Date: 20251021
  Serious: Yes (Other)
  Sender: ALEXION PHARMACEUTICALS
  Company Number: US-AstraZeneca-CH-00791345A

PATIENT
  Sex: Female

DRUGS (1)
  1. ANIFROLUMAB [Suspect]
     Active Substance: ANIFROLUMAB
     Route: 065

REACTIONS (8)
  - Systemic lupus erythematosus [Unknown]
  - Seizure [Unknown]
  - Epilepsy [Unknown]
  - Adrenocortical insufficiency acute [Unknown]
  - Adrenal insufficiency [Unknown]
  - Loss of consciousness [Unknown]
  - Illness [Unknown]
  - Product use issue [Unknown]
